FAERS Safety Report 11668092 (Version 1)
Quarter: 2015Q4

REPORT INFORMATION
  Report Type: Report from Study
  Country: HU (occurrence: HU)
  Receive Date: 20151027
  Receipt Date: 20151027
  Transmission Date: 20160304
  Serious: Yes (Hospitalization)
  Sender: FDA-Public Use
  Company Number: HU-ABBVIE-15P-076-1484801-00

PATIENT
  Age: 60 Year
  Sex: Female

DRUGS (3)
  1. VIEKIRAX [Suspect]
     Active Substance: OMBITASVIR\PARITAPREVIR\RITONAVIR
     Indication: HEPATITIS C
     Dosage: 12.5/75/50 MG, 2 TABLETS AT A TIME
     Route: 048
     Dates: start: 20151006
  2. EXVIERA [Suspect]
     Active Substance: DASABUVIR
     Indication: HEPATITIS C
     Route: 048
     Dates: start: 20151006
  3. MODERIBA [Concomitant]
     Active Substance: RIBAVIRIN
     Indication: HEPATITIS C
     Dosage: 1 TABLET IN THE MORNING, 2 TABLETS IN THE EVENING
     Route: 048
     Dates: start: 20151006

REACTIONS (4)
  - Headache [Recovering/Resolving]
  - Cough [Recovering/Resolving]
  - Dry skin [Not Recovered/Not Resolved]
  - Rhinorrhoea [Recovering/Resolving]

NARRATIVE: CASE EVENT DATE: 20151006
